FAERS Safety Report 13199739 (Version 1)
Quarter: 2017Q1

REPORT INFORMATION
  Report Type: Spontaneous
  Country: GB (occurrence: GB)
  Receive Date: 20170208
  Receipt Date: 20170208
  Transmission Date: 20170428
  Serious: Yes (Other)
  Sender: FDA-Public Use
  Company Number: PHHY2017GB015703

PATIENT
  Age: 10 Decade
  Sex: Female

DRUGS (1)
  1. SALBUTAMOL [Suspect]
     Active Substance: ALBUTEROL
     Indication: PRODUCT USED FOR UNKNOWN INDICATION
     Dosage: 100 UG,
     Route: 065

REACTIONS (4)
  - Drug ineffective [Unknown]
  - Middle insomnia [Unknown]
  - Dyspnoea [Unknown]
  - Wheezing [Unknown]
